FAERS Safety Report 6588943-4 (Version None)
Quarter: 2010Q1

REPORT INFORMATION
  Report Type: 
  Country: None (occurrence: None)
  Receive Date: 20100218
  Receipt Date: 20100208
  Transmission Date: 20100710
  Serious: Yes (Life-Threatening, Hospitalization)
  Sender: FDA-Public Use
  Company Number: DE-PFIZER INC-2009267869

PATIENT
  Age: 43 Year
  Sex: Male
  Weight: 72 kg

DRUGS (12)
  1. BLINDED *NO SUBJECT DRUG [Suspect]
     Indication: PROSTATE CANCER
     Dosage: TDD 37.5 MG
     Route: 048
     Dates: start: 20090904, end: 20090909
  2. BLINDED *PLACEBO [Suspect]
     Indication: PROSTATE CANCER
     Dosage: TDD 37.5 MG
     Route: 048
     Dates: start: 20090904, end: 20090909
  3. BLINDED SUNITINIB MALATE [Suspect]
     Indication: PROSTATE CANCER
     Dosage: TDD 37.5 MG
     Route: 048
     Dates: start: 20090904, end: 20090909
  4. PREDNISONE [Suspect]
     Indication: PROSTATE CANCER
     Dosage: 5 MG, 1X/DAY
     Route: 048
     Dates: start: 20090904, end: 20090904
  5. PANTOZOL [Concomitant]
     Dosage: UNK
     Route: 048
     Dates: start: 20010101
  6. BICALUTAMIDE [Concomitant]
     Dosage: UNK
     Route: 048
     Dates: start: 20071222, end: 20090826
  7. LEUPRORELIN [Concomitant]
     Dosage: UNK
     Route: 058
     Dates: start: 20071201
  8. CALCIUM [Concomitant]
     Dosage: UNK
     Route: 048
     Dates: start: 20071201
  9. VITAMIN D [Concomitant]
     Dosage: UNK
     Route: 048
     Dates: start: 20071201
  10. PREDNISOLON [Concomitant]
     Dosage: UNK
     Route: 048
     Dates: start: 20090123, end: 20090826
  11. PREDNISOLON [Concomitant]
     Dosage: UNK
     Dates: start: 20090904
  12. ZOMETA [Concomitant]
     Dosage: UNK
     Route: 042
     Dates: start: 20071201

REACTIONS (1)
  - HAEMORRHAGE [None]
